FAERS Safety Report 12374783 (Version 1)
Quarter: 2016Q2

REPORT INFORMATION
  Report Type: Spontaneous
  Country: US (occurrence: US)
  Receive Date: 20160517
  Receipt Date: 20160517
  Transmission Date: 20160815
  Serious: No
  Sender: FDA-Public Use
  Company Number: US-PFIZER INC-2016240815

PATIENT
  Age: 47 Year
  Sex: Male
  Weight: 104 kg

DRUGS (1)
  1. VIAGRA [Suspect]
     Active Substance: SILDENAFIL CITRATE
     Dosage: ORAL, ONE PILL PER DAY/TAKING ^250MG^ ONE PILL PER DAY, ORALLY
     Route: 048

REACTIONS (3)
  - Incorrect dose administered [Unknown]
  - Ejaculation disorder [Unknown]
  - Erection increased [Unknown]

NARRATIVE: CASE EVENT DATE: 201603
